FAERS Safety Report 4390863-0 (Version None)
Quarter: 2004Q3

REPORT INFORMATION
  Report Type: 
  Country: None (occurrence: None)
  Receive Date: 20040702
  Receipt Date: 20040702
  Transmission Date: 20050211
  Serious: No
  Sender: FDA-Public Use
  Company Number: None

PATIENT
  Sex: Female
  Weight: 71.6683 kg

DRUGS (2)
  1. ZOLOFT [Suspect]
     Indication: DEPRESSION
     Dosage: 1.5 EVERYDAY ORAL
     Route: 048
     Dates: start: 20030829, end: 20040701
  2. ZOLOFT [Suspect]
     Indication: PANIC ATTACK
     Dosage: 1.5 EVERYDAY ORAL
     Route: 048
     Dates: start: 20030829, end: 20040701

REACTIONS (7)
  - AGITATION [None]
  - DEPRESSION [None]
  - DRUG DEPENDENCE [None]
  - FORMICATION [None]
  - HYPERAESTHESIA [None]
  - INFLUENZA LIKE ILLNESS [None]
  - SUICIDAL IDEATION [None]
